FAERS Safety Report 11635992 (Version 4)
Quarter: 2015Q4

REPORT INFORMATION
  Report Type: Report from Study
  Country: US (occurrence: US)
  Receive Date: 20151016
  Receipt Date: 20151116
  Transmission Date: 20160304
  Serious: Yes (Other)
  Sender: FDA-Public Use
  Company Number: US-AMGEN-USASL2015107631

PATIENT
  Age: 50 Year
  Sex: Female

DRUGS (1)
  1. ENBREL [Suspect]
     Active Substance: ETANERCEPT
     Indication: RHEUMATOID ARTHRITIS
     Dosage: 50 MG, QWK
     Route: 065
     Dates: start: 20150612

REACTIONS (10)
  - Malaise [Unknown]
  - Pain [Unknown]
  - Pneumonia [Unknown]
  - Lung infection [Unknown]
  - Upper respiratory tract infection [Unknown]
  - Bacterial infection [Unknown]
  - Diabetes mellitus [Unknown]
  - Lung disorder [Unknown]
  - Immune system disorder [Unknown]
  - Oral herpes [Recovered/Resolved]

NARRATIVE: CASE EVENT DATE: 2015
